FAERS Safety Report 4961791-4 (Version None)
Quarter: 2006Q2

REPORT INFORMATION
  Report Type: 
  Country: None (occurrence: None)
  Receive Date: 20060404
  Receipt Date: 20060110
  Transmission Date: 20061013
  Serious: Yes (Disabling, Other)
  Sender: FDA-Public Use
  Company Number: PHRM2006FR00499

PATIENT
  Age: 57 Year
  Sex: Female
  Weight: 57 kg

DRUGS (5)
  1. ZOMETA [Suspect]
     Indication: METASTASES TO BONE
     Dosage: 4 MG, QMO
     Route: 042
     Dates: start: 20030301, end: 20060101
  2. TAXOTERE [Concomitant]
     Indication: BREAST CANCER METASTATIC
     Route: 042
     Dates: start: 20040927, end: 20050110
  3. XELODA [Concomitant]
     Indication: BREAST CANCER METASTATIC
     Dosage: 900 MG/M2
     Route: 048
     Dates: start: 20040927, end: 20040927
  4. XELODA [Concomitant]
     Dosage: 1150 MG, BID
     Route: 048
     Dates: start: 20050318, end: 20050318
  5. XELODA [Concomitant]
     Dosage: 1 G, BID
     Route: 048
     Dates: start: 20050603, end: 20050603

REACTIONS (5)
  - BONE DISORDER [None]
  - OSTEITIS [None]
  - OSTEONECROSIS [None]
  - TOOTH DISORDER [None]
  - TOOTH EXTRACTION [None]
